FAERS Safety Report 9334806 (Version 1)
Quarter: 2013Q2

REPORT INFORMATION
  Report Type: Spontaneous
  Country: US (occurrence: US)
  Receive Date: 20130606
  Receipt Date: 20130606
  Transmission Date: 20140414
  Serious: No
  Sender: FDA-Public Use
  Company Number: US-AMGEN-USASP2013018028

PATIENT
  Age: 60 Year
  Sex: Female

DRUGS (14)
  1. PROLIA [Suspect]
     Indication: OSTEOPOROSIS POSTMENOPAUSAL
  2. OXYCODONE [Concomitant]
     Dosage: UNK UNK, QD
     Dates: start: 2000
  3. PHENYTOIN [Concomitant]
     Dates: start: 2000
  4. ENALAPRIL [Concomitant]
     Dates: start: 2000
  5. AMLODIPINE [Concomitant]
  6. IMITREX                            /01044801/ [Concomitant]
  7. NEXIUM                             /01479302/ [Concomitant]
  8. XANAX [Concomitant]
     Dosage: 1 MG, QID
  9. CARISOPRODOL [Concomitant]
     Dosage: UNK, BID
  10. GABAPENTIN [Concomitant]
  11. CALCIUM [Concomitant]
  12. VITAMIN D                          /00107901/ [Concomitant]
  13. SIMVASTATIN [Concomitant]
  14. FENTANYL                           /00174602/ [Concomitant]
     Dosage: 100 MG, EVERY 3 DAYS

REACTIONS (2)
  - Pain [Unknown]
  - Urinary tract infection [Unknown]
